FAERS Safety Report 19962505 (Version 1)
Quarter: 2021Q4

REPORT INFORMATION
  Report Type: Spontaneous
  Country: FR (occurrence: FR)
  Receive Date: 20211018
  Receipt Date: 20211018
  Transmission Date: 20220304
  Serious: Yes (Hospitalization, Other)
  Sender: FDA-Public Use
  Company Number: FR-AFSSAPS-GR20214286

PATIENT
  Age: 33 Year
  Sex: Female
  Weight: 65 kg

DRUGS (3)
  1. PREGABALIN [Suspect]
     Active Substance: PREGABALIN
     Indication: Intentional overdose
     Dosage: NP ()
     Route: 048
     Dates: start: 20210702, end: 20210702
  2. ZOPICLONE [Suspect]
     Active Substance: ZOPICLONE
     Indication: Intentional overdose
     Dosage: NP ()
     Route: 048
     Dates: start: 20210702, end: 20210702
  3. OXAZEPAM [Suspect]
     Active Substance: OXAZEPAM
     Indication: Intentional overdose
     Dosage: NP ()
     Route: 048
     Dates: start: 20210702, end: 20210702

REACTIONS (4)
  - Coma [Recovered/Resolved]
  - Miosis [Recovered/Resolved]
  - Hypotension [Recovered/Resolved]
  - Poisoning deliberate [Recovered/Resolved]

NARRATIVE: CASE EVENT DATE: 20210702
